FAERS Safety Report 15166634 (Version 7)
Quarter: 2019Q1

REPORT INFORMATION
  Report Type: Spontaneous
  Country: FR (occurrence: FR)
  Receive Date: 20180719
  Receipt Date: 20190207
  Transmission Date: 20190417
  Serious: Yes (Other)
  Sender: FDA-Public Use
  Company Number: PHHY2018FR049315

PATIENT
  Age: 1 Day
  Sex: Male
  Weight: 1.89 kg

DRUGS (32)
  1. METFORMINE HYDROCHLORIDE [Suspect]
     Active Substance: METFORMIN HYDROCHLORIDE
     Indication: FOETAL EXPOSURE DURING PREGNANCY
     Dosage: MATERNAL DOSE: 1700 MG, QD
     Route: 064
     Dates: start: 20160930
  2. METHYLDOPA MSD [Suspect]
     Active Substance: METHYLDOPA
     Indication: FOETAL EXPOSURE DURING PREGNANCY
     Dosage: MATERNAL DOSE:1500 MG, QD
     Route: 064
     Dates: start: 20170720
  3. MACROGOL 400 [Suspect]
     Active Substance: POLYETHYLENE GLYCOL 400
     Indication: FOETAL EXPOSURE DURING PREGNANCY
     Dosage: MATERNAL DOSE 1 DF, QD
     Route: 064
     Dates: start: 20160930, end: 20170405
  4. LARGACTIL [Suspect]
     Active Substance: CHLORPROMAZINE
     Indication: FOETAL EXPOSURE DURING PREGNANCY
     Dosage: MATERNAL DOSE: 25 MG, QD
     Route: 064
     Dates: start: 20170720
  5. ARIPIPRAZOLE. [Suspect]
     Active Substance: ARIPIPRAZOLE
     Indication: FOETAL EXPOSURE DURING PREGNANCY
     Dosage: MATERNAL DOSE: 10 MG, QD
     Route: 064
     Dates: start: 20160930, end: 20170224
  6. METFORMINE HYDROCHLORIDE [Suspect]
     Active Substance: METFORMIN HYDROCHLORIDE
     Dosage: MATERNAL DOSE: 850 MG, QD
     Route: 064
     Dates: end: 20170224
  7. TRAMADOL HYDROCHLORIDE. [Suspect]
     Active Substance: TRAMADOL HYDROCHLORIDE
     Indication: FOETAL EXPOSURE DURING PREGNANCY
     Dosage: MATERNAL DOSE: 50 MG, QD
     Route: 064
     Dates: start: 20160930, end: 20170306
  8. LASIX [Suspect]
     Active Substance: FUROSEMIDE
     Indication: FOETAL EXPOSURE DURING PREGNANCY
     Dosage: MATERNAL DOSE: 40 MG, UNK
     Route: 064
  9. LABETALOL HCL [Suspect]
     Active Substance: LABETALOL HYDROCHLORIDE
     Indication: FOETAL EXPOSURE DURING PREGNANCY
     Dosage: MATERNAL DOSE: 80 MG, QD
     Route: 064
     Dates: start: 20170516
  10. FOLINIC ACID [Suspect]
     Active Substance: LEUCOVORIN
     Indication: FOETAL EXPOSURE DURING PREGNANCY
     Dosage: MATERNAL DOSE: 5 MG, QD
     Route: 064
     Dates: start: 20170224, end: 20170313
  11. PROPRANOLOL HYDROCHLORIDE. [Suspect]
     Active Substance: PROPRANOLOL HYDROCHLORIDE
     Indication: PRODUCT USED FOR UNKNOWN INDICATION
     Dosage: 80 MG, QD
     Route: 064
     Dates: start: 20170516
  12. RAMIPRIL. [Suspect]
     Active Substance: RAMIPRIL
     Indication: FOETAL EXPOSURE DURING PREGNANCY
     Dosage: MATERNAL DOSE: 2.5 MG, QD
     Route: 064
     Dates: start: 20160930, end: 20170224
  13. LANTUS [Suspect]
     Active Substance: INSULIN GLARGINE
     Indication: FOETAL EXPOSURE DURING PREGNANCY
     Dosage: MATERNAL DOSE: 20 IU, QD
     Route: 064
     Dates: start: 20170224
  14. LAROXYL [Suspect]
     Active Substance: AMITRIPTYLINE HYDROCHLORIDE
     Indication: FOETAL EXPOSURE DURING PREGNANCY
     Dosage: MATERNAL DOSE: 2 DF, QD
     Route: 064
     Dates: start: 20160930
  15. AMOXICILLIN. [Suspect]
     Active Substance: AMOXICILLIN
     Indication: FOETAL EXPOSURE DURING PREGNANCY
     Dosage: MATERNAL DOSE: 3 G, QD
     Route: 064
     Dates: start: 20170804, end: 20170811
  16. NICOTINE. [Suspect]
     Active Substance: NICOTINE
     Indication: FOETAL EXPOSURE DURING PREGNANCY
     Dosage: MATERNAL DOSE: 7 MG, QD
     Route: 064
     Dates: start: 20170224, end: 20170516
  17. TARDYFERON [Suspect]
     Active Substance: FERROUS SULFATE
     Indication: FOETAL EXPOSURE DURING PREGNANCY
     Dosage: MATERNAL DOSE: 1 DF, QD
     Route: 064
     Dates: start: 20170313
  18. ACIDE FOLIQUE [Suspect]
     Active Substance: FOLIC ACID
     Dosage: MATERNAL DOSE: 5 MG, QD
     Route: 064
     Dates: start: 20170313
  19. INSULIN LISPRO [Concomitant]
     Active Substance: INSULIN LISPRO
     Indication: FOETAL EXPOSURE DURING PREGNANCY
     Dosage: UNK
     Route: 064
     Dates: start: 20161230, end: 20170224
  20. METFORMINE HYDROCHLORIDE [Suspect]
     Active Substance: METFORMIN HYDROCHLORIDE
     Dosage: MATERNAL DOSE: 1700MG, QD
     Route: 064
     Dates: start: 20170804
  21. AMOXICILLIN. [Suspect]
     Active Substance: AMOXICILLIN
     Dosage: MATERNAL DOSE: 1 G, UNK
     Route: 065
     Dates: start: 201708, end: 20180811
  22. LEVEMIR [Suspect]
     Active Substance: INSULIN DETEMIR
     Indication: FOETAL EXPOSURE DURING PREGNANCY
     Dosage: MATERNAL DOSE: 10 IU, QD
     Route: 064
     Dates: start: 20160930, end: 20170224
  23. ACIDE FOLIQUE [Suspect]
     Active Substance: FOLIC ACID
     Indication: FOETAL EXPOSURE DURING PREGNANCY
     Dosage: MATERNAL DOSE: 5 MG, QD
     Route: 064
     Dates: start: 20170224, end: 20170313
  24. DIFFU K [Suspect]
     Active Substance: POTASSIUM CHLORIDE
     Indication: FOETAL EXPOSURE DURING PREGNANCY
     Dosage: MATERNAL DOSE: 120 MG, QD
     Route: 064
     Dates: start: 20170804
  25. LOXEN LP [Suspect]
     Active Substance: NICARDIPINE HYDROCHLORIDE
     Indication: FOETAL EXPOSURE DURING PREGNANCY
     Dosage: MATERNAL DOSE: 50 MG QD
     Route: 064
     Dates: start: 20170313, end: 20170405
  26. NICARDIPINE [Suspect]
     Active Substance: NICARDIPINE
     Indication: FOETAL EXPOSURE DURING PREGNANCY
     Dosage: MATERNAL DOSE: 50 MG, FORME LP X2/J
     Route: 064
     Dates: start: 20170405
  27. GLICLAZIDE [Suspect]
     Active Substance: GLICLAZIDE
     Indication: FOETAL EXPOSURE DURING PREGNANCY
     Dosage: MATERNAL DOSE: 120 MG, QD
     Route: 064
     Dates: start: 20160930, end: 20170224
  28. FUROSEMIDE. [Suspect]
     Active Substance: FUROSEMIDE
     Indication: FOETAL EXPOSURE DURING PREGNANCY
     Dosage: MATERNAL DOSE : 40 MG
     Route: 064
  29. HUMALOG [Suspect]
     Active Substance: INSULIN LISPRO
     Indication: FOETAL EXPOSURE DURING PREGNANCY
     Dosage: MATERNAL DOSE: 7 ?G/M2, QD
     Route: 064
     Dates: start: 20170224
  30. DIFFU K [Suspect]
     Active Substance: POTASSIUM CHLORIDE
     Dosage: 3600 MG, QD1200 MG, QD (2 TO 3 TIMES PER DAY)
     Route: 064
     Dates: start: 20170804
  31. GABAPENTIN. [Suspect]
     Active Substance: GABAPENTIN
     Indication: FOETAL EXPOSURE DURING PREGNANCY
     Dosage: MATERNAL DOSE: 1200 MG (400 MG AND 800 MG), QD
     Route: 064
     Dates: start: 20160930
  32. INSULIN LISPRO [Concomitant]
     Active Substance: INSULIN LISPRO
     Dosage: MATERNAL DOSE:21UG/M2,QD
     Route: 064
     Dates: start: 20170224

REACTIONS (5)
  - Low birth weight baby [Unknown]
  - Premature baby [Not Recovered/Not Resolved]
  - Foetal disorder [Unknown]
  - Neutropenia neonatal [Not Recovered/Not Resolved]
  - Foetal exposure during pregnancy [Unknown]

NARRATIVE: CASE EVENT DATE: 20170914
